FAERS Safety Report 22051513 (Version 1)
Quarter: 2023Q1

REPORT INFORMATION
  Report Type: Other
  Country: None (occurrence: JP)
  Receive Date: 20230301
  Receipt Date: 20230301
  Transmission Date: 20230417
  Serious: Yes (Hospitalization)
  Sender: FDA-Public Use
  Company Number: JP-OrBion Pharmaceuticals Private Limited-2138610

PATIENT
  Age: 72 Year
  Sex: Female

DRUGS (1)
  1. ARIPIPRAZOLE [Suspect]
     Active Substance: ARIPIPRAZOLE
     Indication: Hallucination, auditory
     Route: 065

REACTIONS (2)
  - Arrhythmia [Unknown]
  - Rash [Unknown]
